FAERS Safety Report 13644357 (Version 1)
Quarter: 2017Q2

REPORT INFORMATION
  Report Type: Spontaneous
  Country: US (occurrence: US)
  Receive Date: 20170612
  Receipt Date: 20170612
  Transmission Date: 20170830
  Serious: No
  Sender: FDA-Public Use
  Company Number: US-ROCHE-664228

PATIENT
  Sex: Female
  Weight: 49.9 kg

DRUGS (3)
  1. VYVANSE [Interacting]
     Active Substance: LISDEXAMFETAMINE DIMESYLATE
     Indication: ATTENTION DEFICIT/HYPERACTIVITY DISORDER
     Route: 048
  2. WELLBUTRIN [Suspect]
     Active Substance: BUPROPION HYDROCHLORIDE
     Indication: DEPRESSION
     Route: 048
     Dates: start: 200909, end: 200909
  3. KLONOPIN [Suspect]
     Active Substance: CLONAZEPAM
     Indication: DEPRESSION
     Dosage: WAS TAKING DRUG ON RANDOM DAYS WHEN REQUIRED.
     Route: 048

REACTIONS (5)
  - Depression [Recovered/Resolved]
  - Inhibitory drug interaction [Not Recovered/Not Resolved]
  - Weight increased [Not Recovered/Not Resolved]
  - Energy increased [Not Recovered/Not Resolved]
  - Drug effect decreased [Not Recovered/Not Resolved]

NARRATIVE: CASE EVENT DATE: 2006
